FAERS Safety Report 18567793 (Version 1)
Quarter: 2020Q4

REPORT INFORMATION
  Report Type: Spontaneous
  Country: NL (occurrence: NL)
  Receive Date: 20201202
  Receipt Date: 20201202
  Transmission Date: 20210114
  Serious: Yes (Other)
  Sender: FDA-Public Use
  Company Number: NL-TEVA-2020-NL-1854345

PATIENT
  Age: 50 Year
  Sex: Female
  Weight: 60 kg

DRUGS (1)
  1. AMOXICILLINE/CLAVULAANZUUR TABLET 500/125MG / BRAND NAME NOT SPECIFIED [Suspect]
     Active Substance: AMOXICILLIN\CLAVULANIC ACID
     Indication: LOCALISED INFECTION
     Dosage: 3 DOSAGE FORMS DAILY;
     Dates: start: 20201022, end: 20201028

REACTIONS (2)
  - Rash pruritic [Recovered/Resolved]
  - Face oedema [Recovered/Resolved]

NARRATIVE: CASE EVENT DATE: 20201028
